FAERS Safety Report 4513983-6 (Version None)
Quarter: 2004Q4

REPORT INFORMATION
  Report Type: 
  Country: None (occurrence: None)
  Receive Date: 20041130
  Receipt Date: 20041013
  Transmission Date: 20050328
  Serious: Yes (Other)
  Sender: FDA-Public Use
  Company Number: US-GLAXOSMITHKLINE-A0529689A

PATIENT
  Age: 52 Year
  Sex: Female

DRUGS (5)
  1. WELLBUTRIN [Suspect]
     Indication: DEPRESSION
     Dosage: 300MG PER DAY
     Route: 048
     Dates: start: 20040101
  2. ASTELIN [Concomitant]
  3. NASONEX [Concomitant]
  4. SINGULAIR [Concomitant]
  5. CLARINEX [Concomitant]

REACTIONS (3)
  - AMNESIA [None]
  - CONVULSION [None]
  - GRAND MAL CONVULSION [None]
